FAERS Safety Report 19847962 (Version 1)
Quarter: 2021Q3

REPORT INFORMATION
  Report Type: Spontaneous
  Country: LV (occurrence: LV)
  Receive Date: 20210917
  Receipt Date: 20210917
  Transmission Date: 20211014
  Serious: Yes (Other)
  Sender: FDA-Public Use
  Company Number: LV-BAYER-2021-210530

PATIENT
  Sex: Female

DRUGS (1)
  1. MIRENA [Suspect]
     Active Substance: LEVONORGESTREL
     Dosage: 20 ?G, CONT
     Route: 015

REACTIONS (5)
  - Idiopathic intracranial hypertension [Recovered/Resolved]
  - Visual impairment [Recovered/Resolved]
  - Dissociative amnesia [Recovered/Resolved]
  - Balance disorder [Recovered/Resolved]
  - Prosopagnosia [Recovered/Resolved]
